FAERS Safety Report 4526941-2 (Version None)
Quarter: 2004Q4

REPORT INFORMATION
  Report Type: 
  Country: None (occurrence: None)
  Receive Date: 20041207
  Receipt Date: 20041122
  Transmission Date: 20050328
  Serious: Yes (Hospitalization)
  Sender: FDA-Public Use
  Company Number: 2004-122308-NL

PATIENT
  Age: 81 Year
  Sex: Male

DRUGS (1)
  1. TICE BCG [Suspect]
     Indication: BLADDER CANCER
     Dosage: INTRAVESICAL
     Route: 043
     Dates: start: 20041108

REACTIONS (3)
  - KLEBSIELLA INFECTION [None]
  - RENAL PAIN [None]
  - URINARY TRACT INFECTION BACTERIAL [None]
